FAERS Safety Report 4686866-9 (Version None)
Quarter: 2005Q2

REPORT INFORMATION
  Report Type: 
  Country: None (occurrence: None)
  Receive Date: 20050608
  Receipt Date: 20050530
  Transmission Date: 20051028
  Serious: Yes (Hospitalization)
  Sender: FDA-Public Use
  Company Number: 2005JP001111

PATIENT
  Age: 51 Year
  Sex: Female

DRUGS (9)
  1. PROGRAF [Suspect]
     Indication: BONE MARROW TRANSPLANT
  2. THIOTEPA [Concomitant]
  3. CYCLOPHOSPHAMIDE [Concomitant]
  4. METHOTREXATE [Concomitant]
  5. ACYCLOVIR [Concomitant]
  6. POLYVALENT IMMUNOGLOBULIN [Concomitant]
  7. FLUDARABINE PHOSPHATE [Concomitant]
  8. LYMPHOGLOBULINE (ANTITHYMOCYTE IMMUNOGLOBULIN) [Concomitant]
  9. PREDNISOLONE [Concomitant]

REACTIONS (10)
  - BONE MARROW DEPRESSION [None]
  - COMA [None]
  - CONVULSION [None]
  - ENCEPHALITIS HERPES [None]
  - GRAFT VERSUS HOST DISEASE [None]
  - HAEMORRHAGIC DIATHESIS [None]
  - NEPHROPATHY TOXIC [None]
  - SEPSIS [None]
  - THROMBOCYTOPENIA [None]
  - TRANSPLANT REJECTION [None]
